FAERS Safety Report 5507099-X (Version None)
Quarter: 2007Q4

REPORT INFORMATION
  Report Type: 
  Country: None (occurrence: None)
  Receive Date: 20071105
  Receipt Date: 20071030
  Transmission Date: 20080405
  Serious: Yes (Death, Hospitalization)
  Sender: FDA-Public Use
  Company Number: FR-MERCK-0711FRA00005

PATIENT
  Age: 80 Year
  Sex: Male

DRUGS (7)
  1. FOSAMAX [Suspect]
     Indication: OSTEOPOROSIS
     Route: 048
     Dates: end: 20070811
  2. PREDNISONE [Suspect]
     Indication: PULMONARY FIBROSIS
     Route: 048
     Dates: end: 20070817
  3. PREDNISONE [Suspect]
     Route: 048
     Dates: start: 20070818, end: 20070824
  4. FUROSEMIDE [Concomitant]
     Route: 048
     Dates: end: 20070811
  5. TIANEPTINE SODIUM [Concomitant]
     Route: 048
     Dates: start: 20070601, end: 20070824
  6. AMLODIPINE BESYLATE [Concomitant]
     Route: 048
     Dates: start: 20070601, end: 20070812
  7. CALCIUM CITRATE AND CHOLECALCIFEROL [Concomitant]
     Indication: OSTEOPOROSIS
     Route: 048
     Dates: end: 20070811

REACTIONS (4)
  - DIABETES MELLITUS [None]
  - DIABETIC HYPEROSMOLAR COMA [None]
  - PANCREATITIS ACUTE [None]
  - RESPIRATORY FAILURE [None]
